FAERS Safety Report 9338649 (Version 1)
Quarter: 2013Q2

REPORT INFORMATION
  Report Type: Spontaneous
  Country: US (occurrence: US)
  Receive Date: 20130610
  Receipt Date: 20130610
  Transmission Date: 20140414
  Serious: Yes (Other)
  Sender: FDA-Public Use
  Company Number: US-BRISTOL-MYERS SQUIBB COMPANY-17001769

PATIENT
  Sex: Female

DRUGS (2)
  1. SUSTIVA [Suspect]
     Dosage: ABOUT 2 YEARS AGO
  2. COMBIVIR [Suspect]
     Dosage: ABOUT 2 YEARS AGO

REACTIONS (2)
  - Drug ineffective [Unknown]
  - Adverse event [Unknown]
